FAERS Safety Report 5934894-5 (Version None)
Quarter: 2008Q4

REPORT INFORMATION
  Report Type: 
  Country: None (occurrence: None)
  Receive Date: 20081027
  Receipt Date: 20081015
  Transmission Date: 20090506
  Serious: Yes (Hospitalization)
  Sender: FDA-Public Use
  Company Number: 2008BI025686

PATIENT
  Age: 58 Year
  Sex: Female

DRUGS (3)
  1. TYSABRI [Suspect]
     Indication: MULTIPLE SCLEROSIS
     Dosage: IV
     Route: 042
     Dates: start: 20080628
  2. CON MEDS [Concomitant]
  3. PREV MEDS [Concomitant]

REACTIONS (3)
  - ARTHRALGIA [None]
  - CHONDROPATHY [None]
  - SLEEP APNOEA SYNDROME [None]
